FAERS Safety Report 23040395 (Version 7)
Quarter: 2023Q4

REPORT INFORMATION
  Report Type: Report from Study
  Country: JP (occurrence: JP)
  Receive Date: 20231006
  Receipt Date: 20231122
  Transmission Date: 20240109
  Serious: Yes (Death)
  Sender: FDA-Public Use
  Company Number: JP-PFIZER INC-PV202300161632

PATIENT
  Age: 65 Year
  Sex: Male
  Weight: 74.8 kg

DRUGS (10)
  1. INLYTA [Suspect]
     Active Substance: AXITINIB
     Indication: Renal cell carcinoma
     Dosage: 3 MG, 2X/DAY (CONTINUOUS)
     Route: 048
     Dates: start: 20170622
  2. INLYTA [Suspect]
     Active Substance: AXITINIB
     Dosage: 6 MG, 1X/DAY
     Route: 048
     Dates: start: 20200925, end: 20230925
  3. BAVENCIO [Suspect]
     Active Substance: AVELUMAB
     Indication: Renal cell carcinoma
     Dosage: 735 MG, EVERY 2 WEEKS
     Route: 042
     Dates: start: 20170622, end: 20230920
  4. LAC B N [Concomitant]
     Indication: Prophylaxis against diarrhoea
     Dosage: 1 G (GRANULAR POWDER)
     Route: 048
     Dates: start: 20181029
  5. POLAPREZINC [Concomitant]
     Active Substance: POLAPREZINC
     Indication: Dysgeusia
     Dosage: 75 MG, 1X/DAY
     Route: 048
     Dates: start: 20181029
  6. VONOPRAZAN FUMARATE [Concomitant]
     Active Substance: VONOPRAZAN FUMARATE
     Indication: Prophylaxis against gastrointestinal ulcer
     Dosage: 10 MG, 1X/DAY, NOT ONGOING
     Route: 048
     Dates: start: 20181030
  7. NAFTOPIDIL [Concomitant]
     Active Substance: NAFTOPIDIL
     Indication: Prostatomegaly
     Dosage: 50 MG, 1X/DAY, NOT ONGOING
     Route: 048
     Dates: start: 20181030
  8. TELMISARTAN [Concomitant]
     Active Substance: TELMISARTAN
     Indication: Hypertension
     Dosage: 20 MG, 1X/DAY, NOT ONGOING
     Route: 048
     Dates: start: 20181030
  9. FLUTICASONE FUROATE [Concomitant]
     Active Substance: FLUTICASONE FUROATE
     Indication: Rhinitis allergic
     Dosage: 2 SPRAYS, 1X/DAY
     Route: 061
     Dates: start: 20201204
  10. FEBUXOSTAT [Concomitant]
     Active Substance: FEBUXOSTAT
     Indication: Hyperuricaemia
     Dosage: 20 MG, 1X/DAY
     Route: 048
     Dates: start: 20181030

REACTIONS (2)
  - Aortic dissection [Fatal]
  - Cerebral haemorrhage [Fatal]

NARRATIVE: CASE EVENT DATE: 20230926
